FAERS Safety Report 6138293-5 (Version None)
Quarter: 2009Q1

REPORT INFORMATION
  Report Type: 
  Country: None (occurrence: None)
  Receive Date: 20090327
  Receipt Date: 20090316
  Transmission Date: 20090719
  Serious: Yes (Death, Hospitalization)
  Sender: FDA-Public Use
  Company Number: APP200900137

PATIENT
  Age: 34 Year
  Sex: Female
  Weight: 63.5036 kg

DRUGS (6)
  1. CEFOTETAN [Suspect]
     Indication: ENDOMETRITIS
     Dosage: 2 GM, PREOP, INTRAVENOUS; 1 GM, POSTOP, INTRAVENOUS; 2 GM, ONCE, INTRAVENOUS
     Route: 042
     Dates: start: 20090213, end: 20090213
  2. CEFOTETAN [Suspect]
     Indication: PROPHYLAXIS
     Dosage: 2 GM, PREOP, INTRAVENOUS; 1 GM, POSTOP, INTRAVENOUS; 2 GM, ONCE, INTRAVENOUS
     Route: 042
     Dates: start: 20090213, end: 20090213
  3. CEFOTETAN [Suspect]
     Indication: ENDOMETRITIS
     Dosage: 2 GM, PREOP, INTRAVENOUS; 1 GM, POSTOP, INTRAVENOUS; 2 GM, ONCE, INTRAVENOUS
     Route: 042
     Dates: start: 20090214, end: 20090214
  4. CEFOTETAN [Suspect]
     Indication: PROPHYLAXIS
     Dosage: 2 GM, PREOP, INTRAVENOUS; 1 GM, POSTOP, INTRAVENOUS; 2 GM, ONCE, INTRAVENOUS
     Route: 042
     Dates: start: 20090214, end: 20090214
  5. CEFOTETAN [Suspect]
     Indication: ENDOMETRITIS
     Dosage: 2 GM, PREOP, INTRAVENOUS; 1 GM, POSTOP, INTRAVENOUS; 2 GM, ONCE, INTRAVENOUS
     Route: 042
     Dates: start: 20090225, end: 20090225
  6. CEFOTETAN [Suspect]
     Indication: PROPHYLAXIS
     Dosage: 2 GM, PREOP, INTRAVENOUS; 1 GM, POSTOP, INTRAVENOUS; 2 GM, ONCE, INTRAVENOUS
     Route: 042
     Dates: start: 20090225, end: 20090225

REACTIONS (7)
  - ACUTE RESPIRATORY FAILURE [None]
  - DISSEMINATED INTRAVASCULAR COAGULATION [None]
  - HAEMOLYTIC ANAEMIA [None]
  - POST PROCEDURAL COMPLICATION [None]
  - SEPSIS [None]
  - SYNCOPE [None]
  - TRANSFUSION REACTION [None]
